FAERS Safety Report 22271109 (Version 1)
Quarter: 2023Q2

REPORT INFORMATION
  Report Type: Spontaneous
  Country: US (occurrence: None)
  Receive Date: 20230428
  Receipt Date: 20230428
  Transmission Date: 20230721
  Serious: No
  Sender: FDA-Public Use
  Company Number: None

PATIENT
  Age: 49 Year
  Sex: Female

DRUGS (1)
  1. TERIFLUNOMIDE [Suspect]
     Active Substance: TERIFLUNOMIDE
     Indication: Multiple sclerosis
     Dosage: 14MG DAILY ORAL
     Route: 048
     Dates: start: 20190805

REACTIONS (3)
  - Headache [None]
  - Impaired work ability [None]
  - Asthenia [None]

NARRATIVE: CASE EVENT DATE: 20230407
